FAERS Safety Report 4302417-2 (Version None)
Quarter: 2004Q1

REPORT INFORMATION
  Report Type: 
  Country: None (occurrence: None)
  Receive Date: 20040223
  Receipt Date: 20040223
  Transmission Date: 20041129
  Serious: Yes (Hospitalization)
  Sender: FDA-Public Use
  Company Number: None

PATIENT
  Age: 77 Year
  Sex: Male

DRUGS (2)
  1. TAXOTERE [Suspect]
     Indication: NON-SMALL CELL LUNG CANCER
     Dosage: 20MG/M2 WEEKLY INTRAVENOUS
     Route: 042
     Dates: start: 20031124, end: 20040105
  2. CARBOPLATIN [Suspect]
     Indication: NON-SMALL CELL LUNG CANCER
     Dosage: AUC 2 WEEKLY INTRAVENOUS
     Route: 042
     Dates: start: 20031124, end: 20040105

REACTIONS (8)
  - ASTHENIA [None]
  - COUGH [None]
  - DEHYDRATION [None]
  - DIZZINESS [None]
  - DYSPNOEA [None]
  - LUNG INFILTRATION [None]
  - RADIATION PNEUMONITIS [None]
  - RESPIRATORY DISORDER [None]
